FAERS Safety Report 21601409 (Version 2)
Quarter: 2023Q1

REPORT INFORMATION
  Report Type: Report from Study
  Country: US (occurrence: US)
  Receive Date: 20221116
  Receipt Date: 20230112
  Transmission Date: 20230418
  Serious: No
  Sender: FDA-Public Use
  Company Number: US-ABBVIE-4188157

PATIENT
  Age: 66 Year
  Sex: Female
  Weight: 80.739 kg

DRUGS (10)
  1. RINVOQ [Suspect]
     Active Substance: UPADACITINIB
     Indication: Psoriatic arthropathy
     Dosage: ONGOING
     Route: 048
     Dates: start: 202202
  2. FAMOTIDINE [Concomitant]
     Active Substance: FAMOTIDINE
     Indication: Antacid therapy
  3. TYLENOL [Concomitant]
     Active Substance: ACETAMINOPHEN
     Indication: Arthritis
  4. VITAMIN D [Concomitant]
     Active Substance: VITAMIN D NOS
     Indication: Vitamin supplementation
  5. FOLIC ACID [Concomitant]
     Active Substance: FOLIC ACID
     Indication: Arthritis
  6. TYLENOL [Concomitant]
     Active Substance: ACETAMINOPHEN
     Indication: Arthritis
  7. LEVOTHYROXINE [Concomitant]
     Active Substance: LEVOTHYROXINE
     Indication: Thyroid disorder
  8. HYDROCHLOROTHIAZIDE [Concomitant]
     Active Substance: HYDROCHLOROTHIAZIDE
     Indication: Mineral supplementation
  9. METHOTREXATE [Concomitant]
     Active Substance: METHOTREXATE
     Indication: Arthritis
  10. COVID-19 VACCINE NOS [Suspect]
     Active Substance: COVID-19 VACCINE NOS
     Indication: COVID-19 immunisation
     Dosage: ONE IN ONCE BOOSTER
     Route: 030
     Dates: start: 20221018, end: 20221018

REACTIONS (5)
  - Blister [Recovering/Resolving]
  - Psoriatic arthropathy [Not Recovered/Not Resolved]
  - Blister [Recovered/Resolved]
  - Hypothyroidism [Unknown]
  - Papule [Unknown]

NARRATIVE: CASE EVENT DATE: 20220823
